FAERS Safety Report 11972974 (Version 2)
Quarter: 2016Q1

REPORT INFORMATION
  Report Type: Spontaneous
  Country: US (occurrence: US)
  Receive Date: 20160128
  Receipt Date: 20160208
  Transmission Date: 20160526
  Serious: Yes (Hospitalization)
  Sender: FDA-Public Use
  Company Number: US-JNJFOC-20160116932

PATIENT
  Age: 72 Year
  Sex: Male

DRUGS (5)
  1. WARFARIN [Suspect]
     Active Substance: WARFARIN
     Indication: ANTICOAGULANT THERAPY
     Route: 065
  2. LOCAL HEMOSTATICS [Concomitant]
     Indication: HAEMOSTASIS
     Route: 061
     Dates: start: 20131024, end: 20131024
  3. LOCAL HEMOSTATICS [Concomitant]
     Indication: TRANSURETHRAL BLADDER RESECTION
     Route: 061
     Dates: start: 20131024, end: 20131024
  4. EVICEL [Suspect]
     Active Substance: FIBRINOGEN HUMAN\THROMBIN HUMAN
     Indication: HAEMOSTASIS
     Route: 061
     Dates: start: 20131024, end: 20131024
  5. EVICEL [Suspect]
     Active Substance: FIBRINOGEN HUMAN\THROMBIN HUMAN
     Indication: TRANSURETHRAL BLADDER RESECTION
     Route: 061
     Dates: start: 20131024, end: 20131024

REACTIONS (2)
  - Necrosis [Unknown]
  - Haematuria [Unknown]
